FAERS Safety Report 5352632-4 (Version None)
Quarter: 2007Q2

REPORT INFORMATION
  Report Type: 
  Country: None (occurrence: None)
  Receive Date: 20070611
  Receipt Date: 20070601
  Transmission Date: 20071010
  Serious: Yes (Hospitalization)
  Sender: FDA-Public Use
  Company Number: US-ROCHE-500481

PATIENT
  Age: 57 Year
  Sex: Female
  Weight: 45.8 kg

DRUGS (1)
  1. BONIVA [Suspect]
     Indication: OSTEOPOROSIS
     Route: 048

REACTIONS (4)
  - MUSCLE INJURY [None]
  - SPINAL COMPRESSION FRACTURE [None]
  - SPINAL FUSION SURGERY [None]
  - STAPHYLOCOCCAL INFECTION [None]
